FAERS Safety Report 5360796-1 (Version None)
Quarter: 2007Q2

REPORT INFORMATION
  Report Type: 
  Country: None (occurrence: None)
  Receive Date: 20070618
  Receipt Date: 20070613
  Transmission Date: 20071010
  Serious: Yes (Other)
  Sender: FDA-Public Use
  Company Number: US-ASTRAZENECA-2007UW14191

PATIENT
  Age: 39 Year
  Sex: Female

DRUGS (4)
  1. CRESTOR [Suspect]
     Route: 048
     Dates: end: 20070520
  2. ALEVE [Concomitant]
  3. LISINOPRIL [Concomitant]
  4. HYDROCHLOROTHIAZIDE [Concomitant]

REACTIONS (7)
  - BLOOD CREATINE PHOSPHOKINASE INCREASED [None]
  - FATIGUE [None]
  - GLOMERULAR FILTRATION RATE DECREASED [None]
  - MENTAL IMPAIRMENT [None]
  - MYALGIA [None]
  - NEPHRITIS INTERSTITIAL [None]
  - PROTEINURIA [None]
